FAERS Safety Report 24106871 (Version 5)
Quarter: 2025Q1

REPORT INFORMATION
  Report Type: Report from Study
  Country: US (occurrence: US)
  Receive Date: 20240717
  Receipt Date: 20250117
  Transmission Date: 20250409
  Serious: Yes (Hospitalization)
  Sender: ABBVIE
  Company Number: US-ABBVIE-5785568

PATIENT
  Age: 84 Year
  Sex: Male
  Weight: 86 kg

DRUGS (12)
  1. VENCLEXTA [Suspect]
     Active Substance: VENETOCLAX
     Indication: Chronic lymphocytic leukaemia
     Dosage: TABLETS SHOULD BE SWALLOWED WHOLE WITH A MEAL AND A FULL GLASS OF WATER.?FORM STRENGTH: 100 MILLI...
     Route: 048
  2. VENCLEXTA [Suspect]
     Active Substance: VENETOCLAX
     Indication: Chronic lymphocytic leukaemia
     Dosage: TAKE 1 TABLET (100MG TOTAL) BY MOUTH DAILY. TABLETS SHOULD BE SWALLOWED WHOLE WITH A MEAL AND A F...
     Route: 048
  3. FLUTICASONE [Concomitant]
     Active Substance: FLUTICASONE
     Indication: Multiple allergies
     Dosage: PLACE 2 SPRAYS INTO BOTH NOSTRILS DAILY AS NEEDED?FORM STRENGTH 50 MCG/ACT
  4. LIDOCAINE\PRILOCAINE [Concomitant]
     Active Substance: LIDOCAINE\PRILOCAINE
     Indication: Product used for unknown indication
     Route: 061
  5. LORATADINE [Concomitant]
     Active Substance: LORATADINE
     Indication: Product used for unknown indication
     Route: 048
  6. METOCLOPRAMIDE HYDROCHLORIDE [Concomitant]
     Active Substance: METOCLOPRAMIDE HYDROCHLORIDE
     Indication: Product used for unknown indication
     Dosage: TAKE 1 TO 2 TABLETS 3 TIMES DAILY WITH MEALS?FORM STRENGTH 5 MG
  7. ACETAMINOPHEN [Concomitant]
     Active Substance: ACETAMINOPHEN
     Indication: Headache
     Dosage: AS NEEDED?TABLET SIZE 320 MG
     Route: 048
  8. ACYCLOVIR [Concomitant]
     Active Substance: ACYCLOVIR
     Indication: Product used for unknown indication
     Dosage: FORM STRENGTH 400 MG
  9. BIOTIN [Concomitant]
     Active Substance: BIOTIN
     Indication: Product used for unknown indication
     Dosage: HAIR, SKIN, NAIL
     Route: 048
  10. OMEGA-3 FATTY ACIDS [Concomitant]
     Active Substance: OMEGA-3 FATTY ACIDS
     Indication: Product used for unknown indication
     Dosage: AT BEDTIME
     Route: 048
  11. OMEPRAZOLE [Concomitant]
     Active Substance: OMEPRAZOLE
     Indication: Product used for unknown indication
     Route: 048
  12. POTASSIUM PHOSPHATE [Concomitant]
     Active Substance: POTASSIUM PHOSPHATE
     Indication: Product used for unknown indication
     Dosage: MONOBASIC
     Route: 048

REACTIONS (8)
  - Rib fracture [Unknown]
  - Asthenia [Unknown]
  - Chest injury [Unknown]
  - Fall [Unknown]
  - Balance disorder [Unknown]
  - Pain [Unknown]
  - Pneumonia [Unknown]
  - Rib fracture [Unknown]

NARRATIVE: CASE EVENT DATE: 20240701
